FAERS Safety Report 5794477-7 (Version None)
Quarter: 2008Q2

REPORT INFORMATION
  Report Type: 
  Country: None (occurrence: None)
  Receive Date: 20080630
  Receipt Date: 20080617
  Transmission Date: 20081010
  Serious: No
  Sender: FDA-Public Use
  Company Number: US-ELI_LILLY_AND_COMPANY-US200806004588

PATIENT
  Age: 45 Year
  Sex: Male

DRUGS (4)
  1. CYMBALTA [Suspect]
     Dosage: 30 MG, UNK
  2. CYMBALTA [Suspect]
     Dosage: 60 MG, UNK
  3. LAMICTAL [Concomitant]
     Indication: BIPOLAR DISORDER
  4. METHOTREXATE [Concomitant]
     Indication: ARTHRITIS

REACTIONS (1)
  - HEPATIC ENZYME INCREASED [None]
